FAERS Safety Report 6100211-3 (Version None)
Quarter: 2009Q1

REPORT INFORMATION
  Report Type: 
  Country: None (occurrence: None)
  Receive Date: 20090303
  Receipt Date: 20090218
  Transmission Date: 20090719
  Serious: Yes (Other)
  Sender: FDA-Public Use
  Company Number: JP-ROCHE-616727

PATIENT
  Age: 59 Year
  Sex: Female

DRUGS (6)
  1. CELLCEPT [Suspect]
     Indication: PROPHYLAXIS AGAINST TRANSPLANT REJECTION
     Route: 048
  2. TACROLIMUS HYDRATE [Concomitant]
     Dosage: FORM: ORAL FORMULATION(NOS)
     Route: 048
  3. MEDROL [Concomitant]
     Route: 048
  4. SIMULECT [Concomitant]
     Dosage: ROUTE: INJECTABLE(NOS)
     Route: 050
  5. RITUXAN [Concomitant]
     Route: 041
  6. ADRENAL CORTEX EXTRACT [Concomitant]
     Dosage: DRUG: ADRENAL HORMONE PREPARATION
     Route: 041

REACTIONS (1)
  - URETERIC STENOSIS [None]
